FAERS Safety Report 9144624 (Version 1)
Quarter: 2013Q1

REPORT INFORMATION
  Report Type: Spontaneous
  Country: US (occurrence: US)
  Receive Date: 20130306
  Receipt Date: 20130306
  Transmission Date: 20140127
  Serious: Yes (Other)
  Sender: FDA-Public Use
  Company Number: US-FRI-1000043080

PATIENT
  Sex: Female

DRUGS (1)
  1. LINZESS [Suspect]
     Indication: IRRITABLE BOWEL SYNDROME

REACTIONS (1)
  - Small intestinal obstruction [Unknown]
